FAERS Safety Report 12774302 (Version 6)
Quarter: 2017Q4

REPORT INFORMATION
  Report Type: Spontaneous
  Country: US (occurrence: US)
  Receive Date: 20160923
  Receipt Date: 20171023
  Transmission Date: 20180320
  Serious: Yes (Hospitalization, Other)
  Sender: FDA-Public Use
  Company Number: US-PFIZER INC-2016442946

PATIENT
  Age: 68 Year
  Sex: Female
  Weight: 99.34 kg

DRUGS (5)
  1. VENLAFAXINE ER [Suspect]
     Active Substance: VENLAFAXINE HYDROCHLORIDE
     Indication: EMOTIONAL DISORDER
     Dosage: 150 MG, 1X/DAY (AT NIGHT)
     Route: 048
     Dates: start: 2015
  2. VENLAFAXINE XR [Suspect]
     Active Substance: VENLAFAXINE HYDROCHLORIDE
     Dosage: 150 MG, UNK
  3. EFFEXOR XR [Suspect]
     Active Substance: VENLAFAXINE HYDROCHLORIDE
     Indication: EMOTIONAL DISORDER
     Dosage: 150 MG, UNK
     Route: 048
  4. EFFEXOR XR [Suspect]
     Active Substance: VENLAFAXINE HYDROCHLORIDE
     Indication: CEREBRAL DISORDER
  5. VENLAFAXINE ER [Suspect]
     Active Substance: VENLAFAXINE HYDROCHLORIDE
     Indication: CEREBRAL DISORDER
     Dosage: 150 MG, 1X/DAY (AT NIGHT)
     Route: 048
     Dates: start: 2015

REACTIONS (24)
  - Drug dose omission [Unknown]
  - Memory impairment [Unknown]
  - Fall [Unknown]
  - Impaired driving ability [Recovered/Resolved]
  - Weight decreased [Unknown]
  - Nervousness [Unknown]
  - Pain in extremity [Unknown]
  - Joint injury [Unknown]
  - Tinnitus [Recovered/Resolved]
  - Drug withdrawal syndrome [Recovered/Resolved]
  - Dizziness [Recovered/Resolved]
  - Gait disturbance [Recovered/Resolved]
  - Disturbance in attention [Unknown]
  - Confusional state [Unknown]
  - Loss of consciousness [Unknown]
  - Contusion [Unknown]
  - Eye disorder [Not Recovered/Not Resolved]
  - Vertigo [Unknown]
  - Visual impairment [Unknown]
  - Blood pressure decreased [Unknown]
  - Loss of consciousness [Not Recovered/Not Resolved]
  - Loss of personal independence in daily activities [Recovered/Resolved]
  - Limb discomfort [Unknown]
  - Cerebral disorder [Not Recovered/Not Resolved]

NARRATIVE: CASE EVENT DATE: 201208
